FAERS Safety Report 6192536-0 (Version None)
Quarter: 2009Q2

REPORT INFORMATION
  Report Type: 
  Country: None (occurrence: None)
  Receive Date: 20090518
  Receipt Date: 20090505
  Transmission Date: 20091009
  Serious: Yes (Other)
  Sender: FDA-Public Use
  Company Number: FR-AMGEN-US346601

PATIENT
  Age: 52 Year
  Sex: Female

DRUGS (4)
  1. ENBREL [Suspect]
     Indication: PSORIATIC ARTHROPATHY
     Dosage: UNKNOWN
     Route: 058
     Dates: start: 20081118
  2. LANSOPRAZOLE [Concomitant]
     Dosage: UNKNOWN
     Route: 048
  3. METHOTREXATE [Concomitant]
     Dosage: 10 MG TOTAL WEEKLY
     Route: 065
  4. BI-PROFENID [Concomitant]
     Dosage: UNKNOWN
     Route: 048

REACTIONS (3)
  - HERPES SIMPLEX [None]
  - SKIN PAPILLOMA [None]
  - ULCERATIVE KERATITIS [None]
